FAERS Safety Report 7868710 (Version 3)
Quarter: 2013Q4

REPORT INFORMATION
  Report Type: Report from Study
  Country: BR (occurrence: BR)
  Receive Date: 20110324
  Receipt Date: 20131107
  Transmission Date: 20140711
  Serious: Yes (Other)
  Sender: FDA-Public Use
  Company Number: BR-AMGEN-BRASP2011014661

PATIENT
  Age: 55 Year
  Sex: Female
  Weight: 69 kg

DRUGS (9)
  1. ETANERCEPT [Suspect]
     Indication: RHEUMATOID ARTHRITIS
     Dosage: 50 MG, 1X/WEEK
     Route: 058
     Dates: start: 201006
  2. ETANERCEPT [Suspect]
     Dosage: 50 MG, 1X/WEEK
     Route: 058
     Dates: start: 201208, end: 201309
  3. PURAN T4 [Concomitant]
     Indication: HYPOTHYROIDISM
     Dosage: 125 MG, UNK
     Dates: start: 2008
  4. OMEPRAZOLE [Concomitant]
     Indication: GASTRIC DISORDER
     Dosage: UNK
     Dates: start: 2001
  5. CHLOROQUINE [Concomitant]
     Dosage: 50 MG, 2 STRENGTH
  6. PARACETAMOL [Concomitant]
     Dosage: STRENGTH 750 MG
  7. MELOXICAM [Concomitant]
     Dosage: STRENGTH 15MG
  8. FLUOXETINE [Concomitant]
     Dosage: STRENGTH 20MG
  9. METFORMIN [Concomitant]
     Dosage: UNK

REACTIONS (14)
  - Neuralgia [Not Recovered/Not Resolved]
  - Arthralgia [Not Recovered/Not Resolved]
  - Formication [Unknown]
  - Dry skin [Unknown]
  - Libido decreased [Not Recovered/Not Resolved]
  - Nail disorder [Not Recovered/Not Resolved]
  - Blister [Not Recovered/Not Resolved]
  - Skin sensitisation [Not Recovered/Not Resolved]
  - Acne pustular [Not Recovered/Not Resolved]
  - Diabetes mellitus [Unknown]
  - Injection site mass [Unknown]
  - Injection site pain [Unknown]
  - Injection site erythema [Unknown]
  - Fungal infection [Not Recovered/Not Resolved]
